FAERS Safety Report 8997660 (Version 3)
Quarter: 2013Q3

REPORT INFORMATION
  Report Type: Report from Study
  Country: US (occurrence: US)
  Receive Date: 20130104
  Receipt Date: 20130725
  Transmission Date: 20140515
  Serious: Yes (Disabling, Other)
  Sender: FDA-Public Use
  Company Number: US-US-EMD SERONO, INC.-7185047

PATIENT
  Age: 53 Year
  Sex: Male

DRUGS (4)
  1. REBIF [Suspect]
     Indication: MULTIPLE SCLEROSIS
     Route: 058
     Dates: start: 20050331
  2. EFFEXOR                            /01233801/ [Concomitant]
     Indication: PRODUCT USED FOR UNKNOWN INDICATION
  3. MORPHINE                           /00036303/ [Concomitant]
     Indication: PRODUCT USED FOR UNKNOWN INDICATION
  4. VALIUM                             /00017001/ [Concomitant]
     Indication: PRODUCT USED FOR UNKNOWN INDICATION

REACTIONS (7)
  - Gun shot wound [Recovered/Resolved]
  - Monoplegia [Not Recovered/Not Resolved]
  - Fall [Unknown]
  - Concussion [Unknown]
  - Post-traumatic stress disorder [Recovering/Resolving]
  - Decreased appetite [Recovering/Resolving]
  - Weight decreased [Unknown]
